FAERS Safety Report 22213003 (Version 2)
Quarter: 2023Q2

REPORT INFORMATION
  Report Type: Spontaneous
  Country: PL (occurrence: PL)
  Receive Date: 20230414
  Receipt Date: 20230623
  Transmission Date: 20230721
  Serious: Yes (Other)
  Sender: FDA-Public Use
  Company Number: PL-002147023-NVSC2023PL083369

PATIENT

DRUGS (1)
  1. SECUKINUMAB [Suspect]
     Active Substance: SECUKINUMAB
     Indication: Psoriatic arthropathy
     Dosage: UNK, SECOND DRUG LINE
     Route: 065

REACTIONS (4)
  - Haematochezia [Unknown]
  - Gastrointestinal infection [Unknown]
  - Abdominal pain upper [Unknown]
  - Diarrhoea [Unknown]
